FAERS Safety Report 8799329 (Version 1)
Quarter: 2012Q4

REPORT INFORMATION
  Report Type: 
  Country: US (occurrence: US)
  Receive Date: 20120919
  Receipt Date: 20120919
  Transmission Date: 20130627
  Serious: Yes (Hospitalization, Other)
  Sender: FDA-Public Use
  Company Number: US-ELI_LILLY_AND_COMPANY-US201209002444

PATIENT
  Sex: Female

DRUGS (3)
  1. CYMBALTA [Suspect]
     Dosage: 30 mg, unknown
  2. CYMBALTA [Suspect]
     Dosage: 90 mg, unknown
  3. CYMBALTA [Suspect]
     Dosage: 30 mg, unknown

REACTIONS (4)
  - Pre-eclampsia [Recovered/Resolved]
  - Complication of delivery [Unknown]
  - Exposure during pregnancy [Recovered/Resolved]
  - Exposure during breast feeding [Not Recovered/Not Resolved]
